FAERS Safety Report 20891573 (Version 1)
Quarter: 2022Q2

REPORT INFORMATION
  Report Type: Spontaneous
  Country: US (occurrence: US)
  Receive Date: 20220530
  Receipt Date: 20220530
  Transmission Date: 20220720
  Serious: No
  Sender: FDA-Public Use
  Company Number: US-TARO PHARMACEUTICALS USA INC.-2021TAR00362

PATIENT

DRUGS (2)
  1. TAZAROTENE [Suspect]
     Active Substance: TAZAROTENE
     Indication: Acne
     Dosage: 1 APPLICATION ON FACE AT NIGHT
     Route: 061
     Dates: start: 202010, end: 202103
  2. TAZAROTENE [Suspect]
     Active Substance: TAZAROTENE
     Indication: Skin wrinkling

REACTIONS (5)
  - Condition aggravated [Recovering/Resolving]
  - Burning sensation [Recovering/Resolving]
  - Drug ineffective [Unknown]
  - Product use in unapproved indication [Unknown]
  - Skin irritation [Recovering/Resolving]
